FAERS Safety Report 9886366 (Version 2)
Quarter: 2014Q1

REPORT INFORMATION
  Report Type: Report from Study
  Country: NL (occurrence: NL)
  Receive Date: 20140210
  Receipt Date: 20140312
  Transmission Date: 20141002
  Serious: Yes (Death, Hospitalization)
  Sender: FDA-Public Use
  Company Number: PHHY2014NL014328

PATIENT
  Sex: Female

DRUGS (12)
  1. ZOMETA [Suspect]
     Indication: PLASMA CELL MYELOMA
     Dosage: 4 MG PER 100 ML  ONCE EVERY 4 WEEK
     Route: 042
     Dates: start: 20121004
  2. ZOMETA [Suspect]
     Dosage: 4 MG PER 100 ML  ONCE EVERY 4 WEEK
     Route: 042
     Dates: start: 20121010
  3. ZOMETA [Suspect]
     Dosage: 4 MG PER 100 ML ONCE EVERY 4 WEEK
     Route: 042
     Dates: end: 20140110
  4. ASPIRIN [Concomitant]
     Dosage: UNK UKN, UNK
  5. MOVICOLON [Concomitant]
     Dosage: UNK UKN, UNK
  6. NEXIUM//ESOMEPRAZOLE MAGNESIUM [Concomitant]
     Dosage: UNK UKN, UNK
  7. MAGNESIUM [Concomitant]
     Dosage: UNK UKN, UNK
  8. FLUCONAZOLE [Concomitant]
     Dosage: UNK UKN, UNK
  9. ZELITREX [Concomitant]
     Dosage: UNK UKN, UNK
  10. LYRICA [Concomitant]
     Dosage: UNK UKN, UNK
  11. POMALIDOMIDE [Concomitant]
     Dosage: UNK UKN, UNK
  12. DEXAMETHASON CF//DEXAMETHASONE [Concomitant]
     Dosage: UNK UKN, UNK

REACTIONS (5)
  - Bronchopulmonary aspergillosis [Fatal]
  - Plasma cell myeloma [Fatal]
  - Malignant neoplasm progression [Fatal]
  - Lower respiratory tract infection fungal [Not Recovered/Not Resolved]
  - Pyrexia [Not Recovered/Not Resolved]
